FAERS Safety Report 8334909-3 (Version None)
Quarter: 2012Q2

REPORT INFORMATION
  Report Type: 
  Country: None (occurrence: None)
  Receive Date: 20120503
  Receipt Date: 20120419
  Transmission Date: 20120825
  Serious: Yes (Other)
  Sender: FDA-Public Use
  Company Number: DE-JNJFOC-20120413859

PATIENT
  Sex: Female
  Weight: 62 kg

DRUGS (8)
  1. TAPENTADOL HYDROCHLORIDE [Suspect]
     Indication: ARTHRALGIA
     Route: 065
     Dates: start: 20111110, end: 20111111
  2. TAPENTADOL HYDROCHLORIDE [Suspect]
     Route: 065
  3. TAPENTADOL HYDROCHLORIDE [Suspect]
     Indication: BACK PAIN
     Route: 065
  4. NSAID'S [Concomitant]
     Route: 065
  5. TAPENTADOL HYDROCHLORIDE [Suspect]
     Route: 065
     Dates: start: 20111110, end: 20111111
  6. NSAID'S [Concomitant]
     Indication: ARTHRALGIA
     Route: 065
  7. NSAID'S [Concomitant]
     Indication: BACK PAIN
     Route: 065
  8. NSAID'S [Concomitant]
     Route: 065

REACTIONS (3)
  - NAUSEA [None]
  - DIZZINESS [None]
  - CIRCULATORY COLLAPSE [None]
